FAERS Safety Report 26001183 (Version 1)
Quarter: 2025Q4

REPORT INFORMATION
  Report Type: Spontaneous
  Country: US (occurrence: US)
  Receive Date: 20251105
  Receipt Date: 20251105
  Transmission Date: 20260117
  Serious: Yes (Other)
  Sender: GLAXOSMITHKLINE
  Company Number: US-GSK-US2025137764

PATIENT
  Sex: Female

DRUGS (3)
  1. JEMPERLI [Suspect]
     Active Substance: DOSTARLIMAB-GXLY
     Indication: Endometrial cancer
     Dosage: 500 MG
  2. JEMPERLI [Suspect]
     Active Substance: DOSTARLIMAB-GXLY
     Dosage: 100 MG, Q6W
  3. UNSPECIFIED INGREDIENT [Concomitant]
     Active Substance: UNSPECIFIED INGREDIENT
     Indication: Product used for unknown indication
     Dosage: UNK

REACTIONS (1)
  - Radiation pneumonitis [Recovering/Resolving]
